FAERS Safety Report 8586851-0 (Version None)
Quarter: 2012Q3

REPORT INFORMATION
  Report Type: 
  Country: None (occurrence: None)
  Receive Date: 20120810
  Receipt Date: 20120807
  Transmission Date: 20120928
  Serious: Yes (Death, Other)
  Sender: FDA-Public Use
  Company Number: US-BAYER-200825612NA

PATIENT
  Sex: Male
  Weight: 91 kg

DRUGS (30)
  1. MAGNEVIST [Suspect]
     Indication: ANGIOGRAM
     Dosage: 15 ML, ONCE
     Route: 042
     Dates: start: 20021016, end: 20021016
  2. OPTIMARK [Suspect]
     Indication: NUCLEAR MAGNETIC RESONANCE IMAGING
  3. MULTIHANCE [Suspect]
     Indication: ANGIOGRAM
  4. PROHANCE [Suspect]
     Indication: ANGIOGRAM
     Dosage: UNK UNK, ONCE
     Dates: start: 20021016, end: 20021016
  5. GADOLINIUM IN UNSPECIFIED DRUG [Suspect]
     Indication: OSTEOMYELITIS
  6. CLONIDINE [Concomitant]
  7. MULTIHANCE [Suspect]
     Indication: NUCLEAR MAGNETIC RESONANCE IMAGING
  8. FOSRENOL [Concomitant]
  9. ACCUPRIL [Concomitant]
  10. RENAGEL [Concomitant]
  11. PHOSLO [Concomitant]
  12. DIATX [Concomitant]
  13. VITAMINS NOS [Concomitant]
  14. MAGNEVIST [Suspect]
     Dosage: UNK UNK, ONCE
     Dates: start: 20050125, end: 20050125
  15. OMNISCAN [Suspect]
     Indication: ANGIOGRAM
  16. OPTIMARK [Suspect]
     Indication: ANGIOGRAM
  17. TEMAZEPAM [Concomitant]
  18. MAGNEVIST [Suspect]
     Indication: NUCLEAR MAGNETIC RESONANCE IMAGING
     Dosage: UNK UNK, ONCE
     Dates: start: 20021115, end: 20021115
  19. PROHANCE [Suspect]
     Indication: NUCLEAR MAGNETIC RESONANCE IMAGING
  20. GADOLINIUM IN UNSPECIFIED DRUG [Suspect]
     Indication: DIABETIC FOOT
  21. NOVOLIN R [Concomitant]
  22. MINOXIDIL [Concomitant]
  23. OMNISCAN [Suspect]
     Indication: NUCLEAR MAGNETIC RESONANCE IMAGING
  24. GADOLINIUM IN UNSPECIFIED DRUG [Suspect]
     Indication: NUCLEAR MAGNETIC RESONANCE IMAGING
     Dosage: UNK
     Dates: start: 20021105, end: 20021105
  25. INSULIN [INSULIN] [Concomitant]
  26. COUMADIN [Concomitant]
  27. GADOLINIUM IN UNSPECIFIED DRUG [Suspect]
     Dosage: UNK
     Dates: start: 20050114, end: 20050114
  28. PROCRIT [Concomitant]
  29. LASIX [Concomitant]
  30. MAGNEVIST [Suspect]
     Dosage: 19 ML, ONCE
     Dates: start: 20040716, end: 20040716

REACTIONS (19)
  - NEPHROGENIC SYSTEMIC FIBROSIS [None]
  - EMOTIONAL DISTRESS [None]
  - SKIN INDURATION [None]
  - DEPRESSION [None]
  - PAIN [None]
  - JOINT RANGE OF MOTION DECREASED [None]
  - SKIN TIGHTNESS [None]
  - EXTREMITY CONTRACTURE [None]
  - MUSCLE FIBROSIS [None]
  - ANHEDONIA [None]
  - JOINT CONTRACTURE [None]
  - OEDEMA PERIPHERAL [None]
  - FRUSTRATION [None]
  - MYOSCLEROSIS [None]
  - MUSCLE TIGHTNESS [None]
  - FATIGUE [None]
  - INJURY [None]
  - ACTIVITIES OF DAILY LIVING IMPAIRED [None]
  - ANXIETY [None]
